FAERS Safety Report 9914338 (Version 1)
Quarter: 2014Q1

REPORT INFORMATION
  Report Type: Spontaneous
  Country: DE (occurrence: None)
  Receive Date: 20140218
  Receipt Date: 20140218
  Transmission Date: 20141002
  Serious: Yes (Other)
  Sender: FDA-Public Use
  Company Number: AUR-APL-2014-01457

PATIENT
  Age: 44 Year
  Sex: Female

DRUGS (2)
  1. LEVOFLOXACIN [Suspect]
     Indication: URINARY TRACT INFECTION
     Dosage: (500 MG), ORAL
     Route: 048
  2. L-THYROX 125 (LEVOTHYROXINE SODIUM) [Concomitant]

REACTIONS (10)
  - Muscular weakness [None]
  - Disturbance in attention [None]
  - Abdominal discomfort [None]
  - Arthralgia [None]
  - Headache [None]
  - Pharyngeal hypoaesthesia [None]
  - Tendon pain [None]
  - Hypoaesthesia [None]
  - Hypoaesthesia [None]
  - Dysphagia [None]
